FAERS Safety Report 5017575-4 (Version None)
Quarter: 2006Q2

REPORT INFORMATION
  Report Type: 
  Country: None (occurrence: None)
  Receive Date: 20060601
  Receipt Date: 20060601
  Transmission Date: 20061013
  Serious: Yes (Life-Threatening, Hospitalization, Disabling)
  Sender: FDA-Public Use
  Company Number: None

PATIENT
  Age: 61 Year
  Sex: Male
  Weight: 100.6 kg

DRUGS (8)
  1. VYTORIN [Suspect]
     Indication: HYPERCHOLESTEROLAEMIA
     Dosage: 1 QHS PO
     Route: 048
     Dates: start: 20060424, end: 20060526
  2. VYTORIN [Suspect]
     Indication: HYPERTRIGLYCERIDAEMIA
     Dosage: 1 QHS PO
     Route: 048
     Dates: start: 20060424, end: 20060526
  3. GEMFIBROZIL [Concomitant]
  4. LISINOPRIL [Concomitant]
  5. FELODIPINE [Concomitant]
  6. NIACIN [Concomitant]
  7. ASPIRIN [Concomitant]
  8. METOPROLOL [Concomitant]

REACTIONS (5)
  - BLOOD URINE PRESENT [None]
  - DYSSTASIA [None]
  - MOVEMENT DISORDER [None]
  - MUSCULAR WEAKNESS [None]
  - WHEELCHAIR USER [None]
